FAERS Safety Report 5297545-1 (Version None)
Quarter: 2007Q2

REPORT INFORMATION
  Report Type: 
  Country: None (occurrence: None)
  Receive Date: 20070416
  Receipt Date: 20070403
  Transmission Date: 20071010
  Serious: Yes (Other)
  Sender: FDA-Public Use
  Company Number: PHEH2007US03963

PATIENT
  Sex: Female

DRUGS (1)
  1. ZELNORM [Suspect]
     Indication: IRRITABLE BOWEL SYNDROME
     Dosage: 6MG, BID ^ON AND OFF^
     Route: 048
     Dates: start: 20050101, end: 20070403

REACTIONS (8)
  - ARTHRALGIA [None]
  - CARDIOMEGALY [None]
  - DIZZINESS [None]
  - DYSPNOEA [None]
  - ECHOCARDIOGRAM ABNORMAL [None]
  - MYALGIA [None]
  - PERICARDIAL EFFUSION [None]
  - X-RAY ABNORMAL [None]
